FAERS Safety Report 5202297-7 (Version None)
Quarter: 2006Q4

REPORT INFORMATION
  Report Type: 
  Country: None (occurrence: None)
  Receive Date: 20061003
  Receipt Date: 20060815
  Transmission Date: 20070319
  Serious: Yes (Other)
  Sender: FDA-Public Use
  Company Number: US-JNJFOC-20060701541

PATIENT
  Age: 26 Year
  Sex: Male
  Weight: 86.637 kg

DRUGS (5)
  1. ULTRAM SR [Suspect]
     Indication: BACK PAIN
     Dosage: 100 MG, ORAL
     Route: 048
     Dates: start: 20060601
  2. ULTRAM (TRAMADOL HYDROCHORIDE) UNSPECIFIED [Suspect]
     Indication: NECK PAIN
     Dates: start: 20060401, end: 20060618
  3. LORTAB [Concomitant]
  4. XANAX [Concomitant]
  5. ZOLOFT [Concomitant]

REACTIONS (1)
  - CONVULSION [None]
